FAERS Safety Report 17583875 (Version 4)
Quarter: 2020Q2

REPORT INFORMATION
  Report Type: Report from Study
  Country: CA (occurrence: CA)
  Receive Date: 20200326
  Receipt Date: 20200630
  Transmission Date: 20200713
  Serious: Yes (Hospitalization, Other)
  Sender: FDA-Public Use
  Company Number: CA-ROCHE-2523564

PATIENT
  Age: 62 Year
  Sex: Female

DRUGS (11)
  1. RITUXAN [Suspect]
     Active Substance: RITUXIMAB
     Indication: IMMUNE THROMBOCYTOPENIA
     Dosage: 1 EVERY WEEK FOR 4 DOSE
     Route: 042
     Dates: start: 20200109
  2. RITUXAN [Suspect]
     Active Substance: RITUXIMAB
     Indication: NEOPLASM MALIGNANT
     Route: 065
     Dates: start: 2015
  3. LYRICA [Concomitant]
     Active Substance: PREGABALIN
  4. PLAQUENIL [Suspect]
     Active Substance: HYDROXYCHLOROQUINE SULFATE
     Indication: PRODUCT USED FOR UNKNOWN INDICATION
     Route: 065
     Dates: start: 20150423, end: 20190913
  5. ACETAMINOPHEN. [Concomitant]
     Active Substance: ACETAMINOPHEN
     Indication: PREMEDICATION
     Route: 048
     Dates: start: 20200109
  6. SYNTHROID [Concomitant]
     Active Substance: LEVOTHYROXINE SODIUM
  7. ACTEMRA [Suspect]
     Active Substance: TOCILIZUMAB
     Indication: RHEUMATOID ARTHRITIS
     Route: 058
     Dates: start: 20200513
  8. LEFLUNOMIDE. [Suspect]
     Active Substance: LEFLUNOMIDE
     Indication: PRODUCT USED FOR UNKNOWN INDICATION
     Route: 065
     Dates: start: 20160421, end: 20170821
  9. SULFASALAZINE. [Suspect]
     Active Substance: SULFASALAZINE
     Indication: PRODUCT USED FOR UNKNOWN INDICATION
     Route: 065
     Dates: start: 20160907, end: 20190913
  10. DIPHENHYDRAMINE. [Concomitant]
     Active Substance: DIPHENHYDRAMINE
     Indication: PREMEDICATION
     Route: 048
     Dates: start: 20200109
  11. RITUXAN [Suspect]
     Active Substance: RITUXIMAB
     Route: 042
     Dates: start: 20200116, end: 20200130

REACTIONS (12)
  - Thrombocytopenia [Unknown]
  - Spinal disorder [Unknown]
  - Neuropathy peripheral [Unknown]
  - Intentional product use issue [Unknown]
  - Paraesthesia [Recovered/Resolved]
  - Rash [Unknown]
  - C-reactive protein increased [Unknown]
  - Pelvic pain [Unknown]
  - Off label use [Unknown]
  - Platelet count decreased [Recovering/Resolving]
  - Blood pressure diastolic abnormal [Unknown]
  - Bone marrow toxicity [Unknown]

NARRATIVE: CASE EVENT DATE: 20200110
